FAERS Safety Report 22911071 (Version 2)
Quarter: 2024Q3

REPORT INFORMATION
  Report Type: Report from Study
  Country: FR (occurrence: FR)
  Receive Date: 20230906
  Receipt Date: 20240801
  Transmission Date: 20241017
  Serious: Yes (Hospitalization)
  Sender: SERVIER
  Company Number: FR-SERVIER-S23010230

PATIENT

DRUGS (6)
  1. PEGASPARGASE [Suspect]
     Active Substance: PEGASPARGASE
     Indication: Acute lymphocytic leukaemia
     Dosage: 675 IU, D8, D36 AND D64
     Route: 042
     Dates: start: 20210823, end: 20220107
  2. MERCAPTOPURINE [Suspect]
     Active Substance: MERCAPTOPURINE
     Indication: Acute lymphocytic leukaemia
     Dosage: 27 MG, D1 TO D21, D29 TO D49 AND D57 TO D77
     Route: 048
     Dates: start: 20210927, end: 20211222
  3. METHOTREXATE [Suspect]
     Active Substance: METHOTREXATE
     Indication: Acute lymphocytic leukaemia
     Dosage: 10 MG, D2, D30, D58
     Route: 037
     Dates: start: 20210927, end: 20211222
  4. METHOTREXATE [Suspect]
     Active Substance: METHOTREXATE
     Dosage: 10 MG, D8, D15, D22, D36, D43, D50, D64, D71, D78
     Route: 048
     Dates: start: 20210927
  5. DEXAMETHASONE [Suspect]
     Active Substance: DEXAMETHASONE
     Indication: Acute lymphocytic leukaemia
     Dosage: 3.2 UNK,  D1 TO D5, D29 TO D33 AND D57 TO D61
     Route: 065
     Dates: start: 20210927, end: 20211222
  6. VINCRISTINE [Suspect]
     Active Substance: VINCRISTINE
     Indication: Acute lymphocytic leukaemia
     Dosage: 0.8 MG, D1 D8, D29, D36, D57 AND D64
     Route: 042
     Dates: start: 20210927, end: 20211222

REACTIONS (2)
  - General physical condition abnormal [Recovered/Resolved]
  - Rhinovirus infection [Recovered/Resolved]

NARRATIVE: CASE EVENT DATE: 20211006
